FAERS Safety Report 15485094 (Version 4)
Quarter: 2019Q2

REPORT INFORMATION
  Report Type: Report from Study
  Country: US (occurrence: US)
  Receive Date: 20181010
  Receipt Date: 20190524
  Transmission Date: 20190711
  Serious: Yes (Hospitalization)
  Sender: FDA-Public Use
  Company Number: US-ACTELION-A-NJ2018-177749

PATIENT
  Age: 8 Month
  Sex: Female
  Weight: 39.91 kg

DRUGS (14)
  1. REVATIO [Concomitant]
     Active Substance: SILDENAFIL CITRATE
     Dosage: 10 MG, TID
  2. MELATONIN [Concomitant]
     Active Substance: MELATONIN
     Dosage: 3 MG, UNK
  3. NYSTATIN. [Concomitant]
     Active Substance: NYSTATIN
  4. TOBRAMYCIN. [Concomitant]
     Active Substance: TOBRAMYCIN
     Dosage: 150 MG, BID
     Route: 055
  5. BUDESONIDE. [Concomitant]
     Active Substance: BUDESONIDE
  6. MIRALAX [Concomitant]
     Active Substance: POLYETHYLENE GLYCOL 3350
     Dosage: 8.5 G, UNK
  7. BOSENTAN TABLET 32 MG PED US [Suspect]
     Active Substance: BOSENTAN
     Indication: PULMONARY ARTERIAL HYPERTENSION
     Dosage: 16 MG, BID VIA G-TUBE
     Route: 049
     Dates: start: 20180731
  8. GLYCERIN. [Concomitant]
     Active Substance: GLYCERIN
  9. ALBUTEROL. [Concomitant]
     Active Substance: ALBUTEROL
  10. CLONIDINE. [Concomitant]
     Active Substance: CLONIDINE
  11. ALDACTAZIDE [Concomitant]
     Active Substance: HYDROCHLOROTHIAZIDE\SPIRONOLACTONE
     Dosage: 6 MG, BID
  12. LANSOPRAZOLE. [Concomitant]
     Active Substance: LANSOPRAZOLE
     Dosage: 3 MG/ML, QD
  13. SIMETHICONE (DIMETHICONE) [Concomitant]
     Active Substance: DIMETHICONE
     Dosage: 40 MG, UNK
  14. ZOFRAN [Concomitant]
     Active Substance: ONDANSETRON HYDROCHLORIDE

REACTIONS (8)
  - Diarrhoea [Unknown]
  - Unevaluable event [Not Recovered/Not Resolved]
  - Tracheostomy infection [Recovering/Resolving]
  - Gastrointestinal stoma complication [Recovered/Resolved]
  - Surgical procedure repeated [Recovered/Resolved]
  - Intestinal obstruction [Not Recovered/Not Resolved]
  - Vomiting [Unknown]
  - Dyspnoea [Recovering/Resolving]

NARRATIVE: CASE EVENT DATE: 20180819
